FAERS Safety Report 4747907-3 (Version None)
Quarter: 2005Q3

REPORT INFORMATION
  Report Type: 
  Country: None (occurrence: None)
  Receive Date: 20050817
  Receipt Date: 20050817
  Transmission Date: 20060218
  Serious: Yes (Life-Threatening, Hospitalization, Disabling)
  Sender: FDA-Public Use
  Company Number: None

PATIENT
  Age: 27 Year
  Sex: Female
  Weight: 38.5557 kg

DRUGS (3)
  1. ARAVA [Suspect]
     Indication: RHEUMATOID ARTHRITIS
     Dates: start: 20050520, end: 20050706
  2. TRAMADOL HCL [Concomitant]
  3. PREDNISONE [Concomitant]

REACTIONS (9)
  - ARTHRALGIA [None]
  - HAEMOGLOBIN DECREASED [None]
  - HEADACHE [None]
  - JAUNDICE [None]
  - MYALGIA [None]
  - PYREXIA [None]
  - RASH MACULO-PAPULAR [None]
  - SKIN EXFOLIATION [None]
  - SWELLING FACE [None]
